FAERS Safety Report 16918821 (Version 2)
Quarter: 2019Q4

REPORT INFORMATION
  Report Type: Spontaneous
  Country: NL (occurrence: NL)
  Receive Date: 20191015
  Receipt Date: 20191022
  Transmission Date: 20200122
  Serious: Yes (Hospitalization, Other)
  Sender: FDA-Public Use
  Company Number: NL-LUPIN PHARMACEUTICALS INC.-2019-06556

PATIENT
  Age: 40 Year
  Sex: Female

DRUGS (3)
  1. GABAPENTIN. [Suspect]
     Active Substance: GABAPENTIN
     Indication: PRODUCT USED FOR UNKNOWN INDICATION
     Dosage: 8100 MILLIGRAM, SINGLE (27 PILLS OF 300 MG)
     Route: 065
  2. DAPSONE. [Suspect]
     Active Substance: DAPSONE
     Indication: CHRONIC SPONTANEOUS URTICARIA
     Dosage: UNK
     Route: 065
  3. DAPSONE. [Suspect]
     Active Substance: DAPSONE
     Dosage: 4500 MILLIGRAM, SINGLE (45 PILLS OF 100 MG)
     Route: 065

REACTIONS (4)
  - Suicidal ideation [Unknown]
  - Intentional overdose [Unknown]
  - Oxygen saturation abnormal [Recovered/Resolved]
  - Methaemoglobinaemia [Recovered/Resolved]
